FAERS Safety Report 13826370 (Version 1)
Quarter: 2017Q3

REPORT INFORMATION
  Report Type: Spontaneous
  Country: US (occurrence: US)
  Receive Date: 20170802
  Receipt Date: 20170802
  Transmission Date: 20171127
  Serious: No
  Sender: FDA-Public Use
  Company Number: US-BIOGEN-2017BI00438135

PATIENT

DRUGS (1)
  1. TECFIDERA [Suspect]
     Active Substance: DIMETHYL FUMARATE
     Indication: MULTIPLE SCLEROSIS
     Route: 065

REACTIONS (10)
  - Urinary incontinence [Unknown]
  - Cystitis [Unknown]
  - Muscle spasms [Unknown]
  - Balance disorder [Unknown]
  - Kidney infection [Unknown]
  - Constipation [Unknown]
  - Muscular weakness [Unknown]
  - Loss of control of legs [Unknown]
  - Multiple sclerosis relapse [Unknown]
  - Dyskinesia [Unknown]
